FAERS Safety Report 7038875-2 (Version None)
Quarter: 2010Q4

REPORT INFORMATION
  Report Type: 
  Country: None (occurrence: None)
  Receive Date: 20101012
  Receipt Date: 20101001
  Transmission Date: 20110411
  Serious: No
  Sender: FDA-Public Use
  Company Number: KR-JNJFOC-20100903743

PATIENT
  Age: 83 Year
  Sex: Male

DRUGS (3)
  1. DURAGESIC-100 [Suspect]
     Indication: PAIN MANAGEMENT
     Route: 062
  2. DURAGESIC-100 [Suspect]
     Dosage: HALF OF 12.5 UG/HR
     Route: 062
  3. MOTILIUM-M [Concomitant]
     Indication: ANTIEMETIC SUPPORTIVE CARE
     Dosage: 2 TABLETS (10 MG/TABLET) 3 TIMES A DAY/ORAL
     Route: 048

REACTIONS (3)
  - ASTHENIA [None]
  - SOMNOLENCE [None]
  - WRONG TECHNIQUE IN DRUG USAGE PROCESS [None]
